FAERS Safety Report 5047061-7 (Version None)
Quarter: 2006Q3

REPORT INFORMATION
  Report Type: 
  Country: None (occurrence: None)
  Receive Date: 20060703
  Receipt Date: 20060620
  Transmission Date: 20061208
  Serious: Yes (Other)
  Sender: FDA-Public Use
  Company Number: 2006072912

PATIENT
  Age: 78 Year
  Sex: Female
  Weight: 63.5036 kg

DRUGS (5)
  1. NEURONTIN [Suspect]
     Indication: NEURALGIA
     Dosage: 1200 MG (300 MG, 4 IN 1 D)
     Dates: start: 20060501, end: 20060501
  2. LYRICA [Concomitant]
     Indication: NEURALGIA
     Dosage: (75 MG), ORAL
     Route: 048
     Dates: start: 20060529, end: 20060530
  3. TRIHEXYPHENIDYL HCL [Concomitant]
  4. DYAZIDE [Concomitant]
  5. IBUPROFEN [Concomitant]

REACTIONS (8)
  - BREAST CANCER [None]
  - BREAST MASS [None]
  - DIPLOPIA [None]
  - DRUG EFFECT DECREASED [None]
  - IMPAIRED DRIVING ABILITY [None]
  - METASTASES TO CENTRAL NERVOUS SYSTEM [None]
  - NAUSEA [None]
  - NERVOUS SYSTEM DISORDER [None]
